FAERS Safety Report 6141105-7 (Version None)
Quarter: 2009Q2

REPORT INFORMATION
  Report Type: 
  Country: None (occurrence: None)
  Receive Date: 20090402
  Receipt Date: 20090327
  Transmission Date: 20091009
  Serious: Yes (Hospitalization)
  Sender: FDA-Public Use
  Company Number: PHHY2009JP09956

PATIENT
  Age: 71 Year
  Sex: Female

DRUGS (2)
  1. TEGRETOL [Suspect]
     Indication: TRIGEMINAL NEURALGIA
     Dosage: 50 MG/DAY
  2. TEGRETOL [Suspect]
     Dosage: 200 MG/DAY

REACTIONS (7)
  - DIZZINESS [None]
  - DRUG INEFFECTIVE [None]
  - EATING DISORDER [None]
  - FACIAL PAIN [None]
  - NAUSEA [None]
  - PAIN [None]
  - SURGERY [None]
